FAERS Safety Report 12178757 (Version 1)
Quarter: 2016Q1

REPORT INFORMATION
  Report Type: Spontaneous
  Country: US (occurrence: None)
  Receive Date: 20160314
  Receipt Date: 20160314
  Transmission Date: 20160526
  Serious: No
  Sender: FDA-Public Use
  Company Number: None

PATIENT
  Age: 43 Year
  Sex: Female
  Weight: 69.4 kg

DRUGS (2)
  1. MIRENA [Suspect]
     Active Substance: LEVONORGESTREL
  2. HERBAL LAXATIVE [Concomitant]

REACTIONS (4)
  - Menorrhagia [None]
  - Dizziness [None]
  - Migraine [None]
  - Vaginal odour [None]

NARRATIVE: CASE EVENT DATE: 20160309
